FAERS Safety Report 10141268 (Version 1)
Quarter: 2014Q2

REPORT INFORMATION
  Report Type: Spontaneous
  Country: US (occurrence: US)
  Receive Date: 20140429
  Receipt Date: 20140429
  Transmission Date: 20141212
  Serious: No
  Sender: FDA-Public Use
  Company Number: US-BAYER-2014-057204

PATIENT
  Age: 58 Year
  Sex: Female
  Weight: 79.37 kg

DRUGS (2)
  1. CLIMARA [Suspect]
     Indication: HOT FLUSH
     Dosage: 50 MCG/24HR, OW
     Route: 062
     Dates: start: 2006
  2. CLIMARA [Suspect]
     Indication: NIGHT SWEATS

REACTIONS (2)
  - Irritability [Recovered/Resolved]
  - Drug ineffective [Recovered/Resolved]
